FAERS Safety Report 5660689-6 (Version None)
Quarter: 2008Q1

REPORT INFORMATION
  Report Type: 
  Country: None (occurrence: None)
  Receive Date: 20080311
  Receipt Date: 20080305
  Transmission Date: 20080703
  Serious: Yes (Other)
  Sender: FDA-Public Use
  Company Number: FR-BRISTOL-MYERS SQUIBB COMPANY-14043327

PATIENT
  Age: 60 Year
  Sex: Female

DRUGS (3)
  1. SPRYCEL [Suspect]
     Indication: CHRONIC MYELOID LEUKAEMIA
     Dosage: REDUCED TO 70MG PER DAY ON 23FEB08.
     Dates: start: 20070401
  2. LYRICA [Suspect]
  3. LANTUS [Concomitant]

REACTIONS (7)
  - HEADACHE [None]
  - HYPERGLYCAEMIA [None]
  - HYPERTENSION [None]
  - HYPOGLYCAEMIA [None]
  - HYPOGLYCAEMIC COMA [None]
  - MYALGIA [None]
  - PLEURAL EFFUSION [None]
